FAERS Safety Report 7075494-6 (Version None)
Quarter: 2010Q4

REPORT INFORMATION
  Report Type: 
  Country: None (occurrence: None)
  Receive Date: 20101030
  Receipt Date: 20101006
  Transmission Date: 20110411
  Serious: No
  Sender: FDA-Public Use
  Company Number: US-WYE-H17934310

PATIENT
  Sex: Male
  Weight: 90.8 kg

DRUGS (6)
  1. PRISTIQ [Suspect]
     Indication: DEPRESSION
     Route: 048
     Dates: start: 20100801, end: 20100901
  2. WELLBUTRIN [Suspect]
     Indication: DEPRESSION
     Dates: start: 20100101
  3. WELLBUTRIN [Suspect]
  4. WELLBUTRIN [Suspect]
  5. WELLBUTRIN [Suspect]
  6. LAMOTRIGINE [Concomitant]

REACTIONS (5)
  - DIZZINESS [None]
  - DRUG INEFFECTIVE [None]
  - DRUG WITHDRAWAL SYNDROME [None]
  - HEADACHE [None]
  - NAUSEA [None]
